FAERS Safety Report 16431217 (Version 1)
Quarter: 2019Q2

REPORT INFORMATION
  Report Type: Spontaneous
  Country: GB (occurrence: GB)
  Receive Date: 20190614
  Receipt Date: 20190614
  Transmission Date: 20190711
  Serious: Yes (Other)
  Sender: FDA-Public Use
  Company Number: GB-MYLANLABS-2019M1055157

PATIENT
  Age: 66 Year
  Sex: Male
  Weight: 88 kg

DRUGS (14)
  1. GAVISCON ADVANCE                   /01340901/ [Concomitant]
     Dosage: 20 MILLILITER, QD (3 TIMES A DAY AND 1 AT NIGHT)
     Dates: start: 20171010
  2. DESLORATADINE. [Concomitant]
     Active Substance: DESLORATADINE
     Dosage: 1 DOSAGE FORM, QD
     Dates: start: 20171010
  3. OMEPRAZOLE. [Concomitant]
     Active Substance: OMEPRAZOLE
     Dosage: 2 DOSAGE FORM, QD
     Dates: start: 20171010
  4. CETRABEN EMOLLIENT BATH ADDITIVE [Concomitant]
     Dosage: USE AS NEEDED
     Dates: start: 20171010
  5. FLUTICASONE PROPIONATE. [Concomitant]
     Active Substance: FLUTICASONE PROPIONATE
     Dosage: 2 DOSAGE FORM, QD (TO EACH NOSTRIL EACH MORNING)
     Route: 045
     Dates: start: 20171010
  6. PERINDOPRIL TERT-BUTYLAMINE [Concomitant]
     Active Substance: PERINDOPRIL ERBUMINE
     Dosage: 1 DOSAGE FORM, QD
     Dates: start: 20180622
  7. AMLODIPINE [Suspect]
     Active Substance: AMLODIPINE BESYLATE
     Indication: PRODUCT USED FOR UNKNOWN INDICATION
     Dosage: 5 MILLIGRAM, QD
     Route: 065
     Dates: start: 20171010
  8. COCOIS [Concomitant]
     Dosage: APPLY TO SCALP ONCE WEEKLY AS DIRECTED.
     Dates: start: 20181204
  9. TIMOLOL. [Concomitant]
     Active Substance: TIMOLOL
     Dosage: 2 GTT DROPS, QD (ONE DROP ONCE DAILY TO EACH EYE)
     Dates: start: 20171010
  10. DICLOFENAC DIETHYLAMINE [Concomitant]
     Active Substance: DICLOFENAC DIETHYLAMINE
     Dosage: 3 DOSAGE FORM, QD (APPLY)
     Dates: start: 20171010
  11. SIMVASTATIN. [Interacting]
     Active Substance: SIMVASTATIN
     Indication: PRODUCT USED FOR UNKNOWN INDICATION
     Dosage: UNK
     Route: 065
  12. BETAMETHASONE VALERATE. [Concomitant]
     Active Substance: BETAMETHASONE VALERATE
     Dosage: USE AS PER DERMATOLOGIST
     Dates: start: 20171010, end: 20181204
  13. DERMOL                             /01330701/ [Concomitant]
     Dosage: USE AS DIRECTED.
     Dates: start: 20171010
  14. CAPASAL [Concomitant]
     Dosage: UNK, QD (USE DAILY)
     Dates: start: 20171010

REACTIONS (2)
  - Drug interaction [Unknown]
  - Rash generalised [Recovered/Resolved]

NARRATIVE: CASE EVENT DATE: 20181204
